FAERS Safety Report 5447198-4 (Version None)
Quarter: 2007Q3

REPORT INFORMATION
  Report Type: 
  Country: None (occurrence: None)
  Receive Date: 20070910
  Receipt Date: 20070830
  Transmission Date: 20080115
  Serious: Yes (Hospitalization)
  Sender: FDA-Public Use
  Company Number: PHBS1991NZ02823

PATIENT
  Age: 30 Year
  Sex: Female

DRUGS (3)
  1. CLOZARIL [Suspect]
     Route: 048
     Dates: start: 19900926, end: 19911105
  2. CLOZARIL [Suspect]
     Route: 048
     Dates: start: 20070709, end: 20070830
  3. TRIMETHOPRIM [Concomitant]
     Indication: CYSTITIS
     Dates: start: 19911030

REACTIONS (2)
  - AGRANULOCYTOSIS [None]
  - PYREXIA [None]
